FAERS Safety Report 9700105 (Version 2)
Quarter: 2013Q4

REPORT INFORMATION
  Report Type: Spontaneous
  Country: PL (occurrence: PL)
  Receive Date: 20131121
  Receipt Date: 20131121
  Transmission Date: 20140711
  Serious: Yes (Hospitalization)
  Sender: FDA-Public Use
  Company Number: PL-009507513-1309POL011648

PATIENT
  Sex: Female

DRUGS (2)
  1. SINEMET CR [Suspect]
     Indication: PARKINSON^S DISEASE
     Dosage: STRENGTH 200 MG/ 50 MG, THREE TIMES A DAY
     Route: 048
     Dates: start: 201311
  2. SINEMET CR [Suspect]
     Dosage: HALF TABLET 6 TIMES A DAY
     Route: 048

REACTIONS (4)
  - Feeling abnormal [Recovered/Resolved]
  - Anxiety [Recovered/Resolved]
  - Wrong technique in drug usage process [Unknown]
  - Product packaging issue [Unknown]
